FAERS Safety Report 5221121-X (Version None)
Quarter: 2007Q1

REPORT INFORMATION
  Report Type: 
  Country: None (occurrence: None)
  Receive Date: 20070124
  Receipt Date: 20070114
  Transmission Date: 20070707
  Serious: Yes (Hospitalization)
  Sender: FDA-Public Use
  Company Number: 2007302821

PATIENT
  Age: 16 Year
  Sex: Male

DRUGS (1)
  1. BENADRYL [Suspect]
     Dosage: 124 TABS AT ONCE, ORAL
     Route: 048
     Dates: start: 20070114, end: 20070114

REACTIONS (2)
  - HALLUCINATION [None]
  - INCORRECT DOSE ADMINISTERED [None]
